FAERS Safety Report 7892851-6 (Version None)
Quarter: 2011Q4

REPORT INFORMATION
  Report Type: 
  Country: None (occurrence: None)
  Receive Date: 20111104
  Receipt Date: 20111031
  Transmission Date: 20120403
  Serious: Yes (Death, Life-Threatening, Hospitalization, Other)
  Sender: FDA-Public Use
  Company Number: US-BRISTOL-MYERS SQUIBB COMPANY-15962483

PATIENT
  Age: 84 Year
  Sex: Female
  Weight: 53 kg

DRUGS (13)
  1. PACLITAXEL [Suspect]
     Indication: NON-SMALL CELL LUNG CANCER
     Dosage: 200MG/M2. INTER DATE: 26JUL11. DURATION : 1DAY.
     Route: 042
     Dates: start: 20110726
  2. GEMFIBROZIL [Concomitant]
  3. COUMADIN [Concomitant]
  4. CARVEDILOL [Concomitant]
  5. FUROSEMIDE [Concomitant]
  6. NITROGLYCERIN [Concomitant]
  7. ALBUTEROL [Concomitant]
  8. FOSAMAX [Concomitant]
  9. AMLODIPINE [Concomitant]
  10. CARBOPLATIN [Suspect]
     Indication: NON-SMALL CELL LUNG CANCER
     Dosage: 6DF
     Route: 065
     Dates: start: 20110706
  11. AMIODARONE HCL [Concomitant]
  12. ASPIRIN [Concomitant]
  13. PREDNISONE [Concomitant]

REACTIONS (4)
  - FEBRILE NEUTROPENIA [None]
  - ATRIAL FIBRILLATION [None]
  - NEOPLASM MALIGNANT [None]
  - BACTERIAL SEPSIS [None]
